FAERS Safety Report 5688837-2 (Version None)
Quarter: 2008Q1

REPORT INFORMATION
  Report Type: 
  Country: None (occurrence: None)
  Receive Date: 20080331
  Receipt Date: 20031013
  Transmission Date: 20080703
  Serious: Yes (Death)
  Sender: FDA-Public Use
  Company Number: IE-ROCHE-349194

PATIENT
  Age: 54 Year
  Sex: Male
  Weight: 117 kg

DRUGS (1)
  1. XENICAL [Suspect]
     Indication: WEIGHT CONTROL
     Route: 048
     Dates: start: 20030826

REACTIONS (1)
  - DEATH [None]
